FAERS Safety Report 23436410 (Version 2)
Quarter: 2024Q1

REPORT INFORMATION
  Report Type: Report from Study
  Country: GB (occurrence: GB)
  Receive Date: 20240124
  Receipt Date: 20240221
  Transmission Date: 20240409
  Serious: Yes (Other)
  Sender: FDA-Public Use
  Company Number: GB-JNJFOC-20231031241

PATIENT
  Age: 86 Year
  Sex: Male

DRUGS (2)
  1. ERLEADA [Suspect]
     Active Substance: APALUTAMIDE
     Indication: Prostate cancer
     Route: 048
     Dates: start: 20230914
  2. ERLEADA [Suspect]
     Active Substance: APALUTAMIDE
     Route: 048

REACTIONS (5)
  - Transient ischaemic attack [Not Recovered/Not Resolved]
  - Restlessness [Recovering/Resolving]
  - Hot flush [Not Recovered/Not Resolved]
  - Quality of life decreased [Unknown]
  - Prostatic specific antigen increased [Not Recovered/Not Resolved]

NARRATIVE: CASE EVENT DATE: 20230901
